FAERS Safety Report 17448361 (Version 2)
Quarter: 2020Q1

REPORT INFORMATION
  Report Type: Report from Study
  Country: None (occurrence: US)
  Receive Date: 20200223
  Receipt Date: 20200324
  Transmission Date: 20200409
  Serious: Yes (Hospitalization, Other)
  Sender: FDA-Public Use
  Company Number: US-ABBVIE-20K-163-3288527-00

PATIENT
  Age: 77 Year
  Sex: Female
  Weight: 43.13 kg

DRUGS (4)
  1. LOPERAMIDE [Concomitant]
     Active Substance: LOPERAMIDE
     Indication: PRODUCT USED FOR UNKNOWN INDICATION
  2. CALCIUM [Concomitant]
     Active Substance: CALCIUM
     Indication: PRODUCT USED FOR UNKNOWN INDICATION
  3. HUMIRA [Suspect]
     Active Substance: ADALIMUMAB
     Indication: CROHN^S DISEASE
     Route: 058
     Dates: start: 201810, end: 20200227
  4. VITAMIN B12 [Concomitant]
     Active Substance: CYANOCOBALAMIN
     Indication: VITAMIN B12 DEFICIENCY

REACTIONS (14)
  - Gastrointestinal inflammation [Recovering/Resolving]
  - Vertigo [Unknown]
  - Intussusception [Recovering/Resolving]
  - Throat irritation [Recovering/Resolving]
  - Weight decreased [Recovering/Resolving]
  - Cough [Recovered/Resolved]
  - Productive cough [Recovering/Resolving]
  - Pharyngitis [Not Recovered/Not Resolved]
  - Pharyngeal mass [Recovering/Resolving]
  - Oropharyngeal pain [Not Recovered/Not Resolved]
  - Dizziness [Recovered/Resolved]
  - Blood magnesium decreased [Not Recovered/Not Resolved]
  - Oral discomfort [Recovering/Resolving]
  - Dyspepsia [Recovering/Resolving]

NARRATIVE: CASE EVENT DATE: 2020
